FAERS Safety Report 6895007-9 (Version None)
Quarter: 2010Q3

REPORT INFORMATION
  Report Type: 
  Country: None (occurrence: None)
  Receive Date: 20100730
  Receipt Date: 20100730
  Transmission Date: 20110219
  Serious: Yes (Life-Threatening)
  Sender: FDA-Public Use
  Company Number: None

PATIENT
  Sex: Male
  Weight: 83.9154 kg

DRUGS (1)
  1. HYDROCORTISONE 20MG TABLET [Suspect]
     Indication: PNEUMONIA PRIMARY ATYPICAL
     Dosage: 1 TABLET 3 TIMES/DAY BY MOUTH
     Route: 048
     Dates: start: 20100709, end: 20100715

REACTIONS (3)
  - ARRHYTHMIA [None]
  - CHEST DISCOMFORT [None]
  - DEVICE MALFUNCTION [None]
